FAERS Safety Report 26040519 (Version 1)
Quarter: 2025Q4

REPORT INFORMATION
  Report Type: Spontaneous
  Country: US (occurrence: None)
  Receive Date: 20251112
  Receipt Date: 20251112
  Transmission Date: 20260118
  Serious: Yes (Other)
  Sender: FDA-CTU
  Company Number: None

PATIENT
  Age: 54 Year
  Sex: Female

DRUGS (1)
  1. CAPECITABINE [Suspect]
     Active Substance: CAPECITABINE
     Indication: Breast cancer
     Dates: start: 20250918

REACTIONS (4)
  - Skin ulcer [None]
  - Pain in extremity [None]
  - Wound [None]
  - Therapy cessation [None]

NARRATIVE: CASE EVENT DATE: 20251107
